FAERS Safety Report 19258388 (Version 1)
Quarter: 2021Q2

REPORT INFORMATION
  Report Type: Spontaneous
  Country: ES (occurrence: ES)
  Receive Date: 20210514
  Receipt Date: 20210514
  Transmission Date: 20210717
  Serious: Yes (Hospitalization, Other)
  Sender: FDA-Public Use
  Company Number: ES-ACCORD-224910

PATIENT
  Age: 61 Year
  Sex: Male

DRUGS (5)
  1. DIAZEPAM. [Interacting]
     Active Substance: DIAZEPAM
     Dosage: 12 CPS
     Route: 048
     Dates: start: 20210116, end: 20210116
  2. BUPROPION/BUPROPION HYDROCHLORIDE [Interacting]
     Active Substance: BUPROPION HYDROCHLORIDE
     Route: 048
     Dates: start: 20210116, end: 20210116
  3. DULOXETINE/DULOXETINE HYDROCHLORIDE [Interacting]
     Active Substance: DULOXETINE HYDROCHLORIDE
     Dosage: 10 CPS
     Route: 048
     Dates: start: 20210116, end: 20210116
  4. LORAZEPAM. [Interacting]
     Active Substance: LORAZEPAM
     Route: 048
     Dates: start: 20210116, end: 20210116
  5. TOPIRAMATE. [Suspect]
     Active Substance: TOPIRAMATE
     Dosage: 5 CPS
     Route: 048
     Dates: start: 20210116, end: 20210116

REACTIONS (6)
  - Depressed level of consciousness [Unknown]
  - Bradyphrenia [Unknown]
  - Rhabdomyolysis [Unknown]
  - Slow speech [Unknown]
  - Disorientation [Unknown]
  - Suicide attempt [Unknown]

NARRATIVE: CASE EVENT DATE: 20210116
